FAERS Safety Report 6198653-3 (Version None)
Quarter: 2009Q2

REPORT INFORMATION
  Report Type: 
  Country: None (occurrence: None)
  Receive Date: 20090519
  Receipt Date: 20090519
  Transmission Date: 20091009
  Serious: Yes (Other)
  Sender: FDA-Public Use
  Company Number: None

PATIENT
  Age: 64 Year
  Sex: Female

DRUGS (3)
  1. OTRIVIN COMP (NCH) (XYLOMETAZOLINE HYDROCHLORIDE, IPRATROPIUM BROMIDE) [Suspect]
     Dosage: NASAL
     Route: 045
     Dates: start: 20081120, end: 20081122
  2. LIPANTHYL ^FOUTNIER^ (FENOFIBRATE) [Concomitant]
  3. ISOPTIN [Concomitant]

REACTIONS (2)
  - HYPERSENSITIVITY [None]
  - RESPIRATORY DISORDER [None]
